FAERS Safety Report 7672256-3 (Version None)
Quarter: 2011Q3

REPORT INFORMATION
  Report Type: 
  Country: None (occurrence: None)
  Receive Date: 20110809
  Receipt Date: 20110711
  Transmission Date: 20111222
  Serious: No
  Sender: FDA-Public Use
  Company Number: US-BAYER-2011-060296

PATIENT
  Age: 66 Year
  Sex: Male

DRUGS (2)
  1. CIPROFLOXACIN HCL [Suspect]
     Indication: WOUND INFECTION
     Dosage: 500 MG, UNK
     Route: 048
     Dates: start: 20110626
  2. MANY MEDICATIONS NOS [Concomitant]

REACTIONS (3)
  - RASH MACULAR [None]
  - HYPERSENSITIVITY [None]
  - FEELING HOT [None]
